FAERS Safety Report 12999635 (Version 1)
Quarter: 2016Q4

REPORT INFORMATION
  Report Type: Spontaneous
  Country: US (occurrence: US)
  Receive Date: 20161205
  Receipt Date: 20161205
  Transmission Date: 20170207
  Serious: No
  Sender: FDA-Public Use
  Company Number: US-DUSA PHARMACEUTICALS, INC.-1060434

PATIENT
  Age: 71 Year
  Sex: Male

DRUGS (6)
  1. LEVULAN KERASTICK [Suspect]
     Active Substance: AMINOLEVULINIC ACID HYDROCHLORIDE
     Indication: ACTINIC KERATOSIS
     Route: 061
     Dates: start: 20160408, end: 20160408
  2. ALEVE [Concomitant]
     Active Substance: NAPROXEN SODIUM
  3. PROSCAR [Concomitant]
     Active Substance: FINASTERIDE
  4. ASPIRIN. [Concomitant]
     Active Substance: ASPIRIN
  5. TIMOLOL. [Concomitant]
     Active Substance: TIMOLOL
  6. ROSUVASTATIN CALCIUM. [Concomitant]
     Active Substance: ROSUVASTATIN CALCIUM

REACTIONS (2)
  - Eye irritation [Recovered/Resolved]
  - Lacrimation increased [Recovered/Resolved]
